FAERS Safety Report 18251573 (Version 1)
Quarter: 2020Q3

REPORT INFORMATION
  Report Type: Report from Study
  Country: CA (occurrence: CA)
  Receive Date: 20200910
  Receipt Date: 20200910
  Transmission Date: 20201103
  Serious: Yes (Other)
  Sender: FDA-Public Use
  Company Number: CA-ACCORD-200066

PATIENT
  Age: 58 Year
  Sex: Female

DRUGS (21)
  1. PREDNISONE. [Suspect]
     Active Substance: PREDNISONE
     Indication: INFLAMMATION
     Route: 048
  2. PARACETAMOL [Concomitant]
     Active Substance: ACETAMINOPHEN
  3. ELTROXIN [Concomitant]
     Active Substance: LEVOTHYROXINE
  4. FUROSEMIDE. [Concomitant]
     Active Substance: FUROSEMIDE
  5. CALCIUM [Concomitant]
     Active Substance: CALCIUM
  6. MORPHINE [Concomitant]
     Active Substance: MORPHINE
  7. PANTOLOC [Concomitant]
     Active Substance: PANTOPRAZOLE SODIUM
  8. ORENCIA [Suspect]
     Active Substance: ABATACEPT
     Indication: RHEUMATOID ARTHRITIS
     Route: 042
  9. AMITRIPTYLINE [Concomitant]
     Active Substance: AMITRIPTYLINE
  10. PREDNISONE. [Suspect]
     Active Substance: PREDNISONE
     Indication: INFLAMMATION
     Route: 065
  11. FOLIC ACID. [Concomitant]
     Active Substance: FOLIC ACID
  12. IBANDRONATE SODIUM. [Concomitant]
     Active Substance: IBANDRONATE SODIUM
  13. METOPROLOL. [Concomitant]
     Active Substance: METOPROLOL
  14. TRAMACET [Concomitant]
     Active Substance: ACETAMINOPHEN\TRAMADOL
  15. TRAMADOL. [Concomitant]
     Active Substance: TRAMADOL
  16. VENTOLINE [Concomitant]
     Active Substance: ALBUTEROL
  17. METHOTREXATE. [Suspect]
     Active Substance: METHOTREXATE
     Indication: ARTHRITIS
  18. FLONASE [Concomitant]
     Active Substance: FLUTICASONE PROPIONATE
  19. HYDROXYCHLOROQUINE [Concomitant]
     Active Substance: HYDROXYCHLOROQUINE
  20. LEFLUNOMIDE. [Concomitant]
     Active Substance: LEFLUNOMIDE
  21. NABILONE [Concomitant]
     Active Substance: NABILONE

REACTIONS (27)
  - Arthralgia [Not Recovered/Not Resolved]
  - Arthritis [Not Recovered/Not Resolved]
  - Blood pressure increased [Not Recovered/Not Resolved]
  - Cough [Not Recovered/Not Resolved]
  - Fluid retention [Not Recovered/Not Resolved]
  - Nasopharyngitis [Not Recovered/Not Resolved]
  - Peripheral swelling [Not Recovered/Not Resolved]
  - Pyrexia [Not Recovered/Not Resolved]
  - Conjunctivitis [Not Recovered/Not Resolved]
  - Feeling hot [Not Recovered/Not Resolved]
  - Memory impairment [Not Recovered/Not Resolved]
  - Infection [Not Recovered/Not Resolved]
  - Rales [Not Recovered/Not Resolved]
  - Weight increased [Not Recovered/Not Resolved]
  - Abdominal pain [Not Recovered/Not Resolved]
  - Diarrhoea [Not Recovered/Not Resolved]
  - Hypertension [Not Recovered/Not Resolved]
  - Fatigue [Not Recovered/Not Resolved]
  - Heart rate increased [Not Recovered/Not Resolved]
  - Oropharyngeal pain [Not Recovered/Not Resolved]
  - Pleural effusion [Not Recovered/Not Resolved]
  - Diverticulitis [Not Recovered/Not Resolved]
  - Drug hypersensitivity [Not Recovered/Not Resolved]
  - Palpitations [Not Recovered/Not Resolved]
  - Bronchitis [Not Recovered/Not Resolved]
  - Alopecia [Not Recovered/Not Resolved]
  - Malaise [Not Recovered/Not Resolved]
